FAERS Safety Report 14612396 (Version 1)
Quarter: 2018Q1

REPORT INFORMATION
  Report Type: Spontaneous
  Country: FR (occurrence: FR)
  Receive Date: 20180308
  Receipt Date: 20180308
  Transmission Date: 20180509
  Serious: Yes (Hospitalization)
  Sender: FDA-Public Use
  Company Number: FR-ASTRAZENECA-2018SE26517

PATIENT
  Age: 68 Year
  Sex: Female

DRUGS (4)
  1. BACTRIM [Suspect]
     Active Substance: SULFAMETHOXAZOLE\TRIMETHOPRIM
     Indication: PROPHYLACTIC CHEMOTHERAPY
     Route: 048
     Dates: start: 20170323, end: 20170329
  2. LAROXYL [Suspect]
     Active Substance: AMITRIPTYLINE HYDROCHLORIDE
     Indication: NEURALGIA
     Route: 048
     Dates: start: 20170306, end: 20170418
  3. REVLIMID [Suspect]
     Active Substance: LENALIDOMIDE
     Indication: POEMS SYNDROME
     Route: 048
     Dates: start: 20170323, end: 20170412
  4. INEXIUM [Suspect]
     Active Substance: ESOMEPRAZOLE
     Indication: HELICOBACTER GASTRITIS
     Route: 048
     Dates: start: 20170314, end: 20170414

REACTIONS (1)
  - Drug reaction with eosinophilia and systemic symptoms [Recovering/Resolving]

NARRATIVE: CASE EVENT DATE: 20170329
